FAERS Safety Report 10617129 (Version 1)
Quarter: 2014Q4

REPORT INFORMATION
  Report Type: Spontaneous
  Country: DE (occurrence: DE)
  Receive Date: 20141201
  Receipt Date: 20141201
  Transmission Date: 20150529
  Serious: Yes (Death, Hospitalization)
  Sender: FDA-Public Use
  Company Number: DE-TEVA-525014GER

PATIENT
  Age: 59 Year
  Sex: Female

DRUGS (1)
  1. ALENDRONIC ACID [Suspect]
     Active Substance: ALENDRONIC ACID
     Indication: OSTEOPOROSIS
     Dosage: 70MG WEEKLY
     Route: 048

REACTIONS (5)
  - Bacterial sepsis [Fatal]
  - Septic embolus [Fatal]
  - Abscess neck [Fatal]
  - Multi-organ failure [Fatal]
  - Osteonecrosis of jaw [Fatal]
